FAERS Safety Report 7208128-8 (Version None)
Quarter: 2010Q4

REPORT INFORMATION
  Report Type: 
  Country: None (occurrence: None)
  Receive Date: 20101230
  Receipt Date: 20101230
  Transmission Date: 20110411
  Serious: No
  Sender: FDA-Public Use
  Company Number: None

PATIENT
  Sex: Male
  Weight: 75.2971 kg

DRUGS (2)
  1. BUDEPRION SR 150 MG TEVA NDC 00093-5502-01 [Suspect]
     Indication: SEASONAL AFFECTIVE DISORDER
     Dosage: 150 MG Q DAY PO
     Route: 048
     Dates: start: 20100327
  2. BUDEPRION SR 150 MG TEVA NDC 00093-5502-01 [Suspect]
     Indication: SEASONAL AFFECTIVE DISORDER
     Dosage: 150 MG Q DAY PO
     Route: 048
     Dates: start: 20100701

REACTIONS (1)
  - PRODUCT SUBSTITUTION ISSUE [None]
